FAERS Safety Report 23911143 (Version 1)
Quarter: 2024Q2

REPORT INFORMATION
  Report Type: Report from Study
  Country: US (occurrence: US)
  Receive Date: 20240528
  Receipt Date: 20240528
  Transmission Date: 20240716
  Serious: Yes (Other)
  Sender: FDA-Public Use
  Company Number: US-AMGEN-HZN-2024-004467

PATIENT
  Age: 58 Year
  Sex: Male

DRUGS (2)
  1. KRYSTEXXA [Suspect]
     Active Substance: PEGLOTICASE
     Indication: Product used for unknown indication
     Dosage: UNK (FIRST INFUSION)
     Route: 042
     Dates: start: 20240412
  2. KRYSTEXXA [Suspect]
     Active Substance: PEGLOTICASE
     Dosage: UNK
     Route: 042
     Dates: start: 20240510

REACTIONS (10)
  - Tunnel vision [Recovered/Resolved]
  - Chest discomfort [Recovered/Resolved]
  - Blood pressure systolic increased [Recovered/Resolved]
  - Dizziness [Recovered/Resolved]
  - Jaw disorder [Recovered/Resolved]
  - Swelling [Unknown]
  - Sleep disorder [Unknown]
  - Back pain [Unknown]
  - Herpes zoster [Unknown]
  - Gout [Not Recovered/Not Resolved]

NARRATIVE: CASE EVENT DATE: 20240412
